FAERS Safety Report 26072363 (Version 1)
Quarter: 2025Q4

REPORT INFORMATION
  Report Type: Spontaneous
  Country: CN (occurrence: CN)
  Receive Date: 20251120
  Receipt Date: 20251120
  Transmission Date: 20260119
  Serious: Yes (Hospitalization)
  Sender: BEIGENE
  Company Number: CN-BEIGENE-BGN-2025-020143

PATIENT
  Age: 52 Year
  Sex: Male
  Weight: 61 kg

DRUGS (18)
  1. TISLELIZUMAB [Suspect]
     Active Substance: TISLELIZUMAB
     Indication: Salivary gland cancer
     Dosage: 200 MILLIGRAM
  2. TISLELIZUMAB [Suspect]
     Active Substance: TISLELIZUMAB
     Dosage: 200 MILLIGRAM
     Route: 041
  3. TISLELIZUMAB [Suspect]
     Active Substance: TISLELIZUMAB
     Dosage: 200 MILLIGRAM
     Route: 041
  4. TISLELIZUMAB [Suspect]
     Active Substance: TISLELIZUMAB
     Dosage: 200 MILLIGRAM
  5. DOCETAXEL [Suspect]
     Active Substance: DOCETAXEL
     Indication: Salivary gland cancer
     Dosage: 40 MILLIGRAM
  6. DOCETAXEL [Suspect]
     Active Substance: DOCETAXEL
     Dosage: 40 MILLIGRAM
     Route: 041
  7. DOCETAXEL [Suspect]
     Active Substance: DOCETAXEL
     Dosage: 80 MILLIGRAM
  8. DOCETAXEL [Suspect]
     Active Substance: DOCETAXEL
     Dosage: 80 MILLIGRAM
     Route: 041
  9. CISPLATIN [Suspect]
     Active Substance: CISPLATIN
     Indication: Salivary gland cancer
     Dosage: 60 MILLIGRAM
     Route: 041
  10. CISPLATIN [Suspect]
     Active Substance: CISPLATIN
     Dosage: 60 MILLIGRAM
  11. SODIUM CHLORIDE [Concomitant]
     Active Substance: SODIUM CHLORIDE
     Indication: Vehicle solution use
     Dosage: 250 MILLILITER
  12. SODIUM CHLORIDE [Concomitant]
     Active Substance: SODIUM CHLORIDE
     Dosage: 250 MILLILITER
     Route: 041
  13. SODIUM CHLORIDE [Concomitant]
     Active Substance: SODIUM CHLORIDE
     Dosage: 100 MILLILITER
  14. SODIUM CHLORIDE [Concomitant]
     Active Substance: SODIUM CHLORIDE
     Dosage: 100 MILLILITER
     Route: 041
  15. SODIUM CHLORIDE [Concomitant]
     Active Substance: SODIUM CHLORIDE
     Dosage: 100 MILLILITER
  16. SODIUM CHLORIDE [Concomitant]
     Active Substance: SODIUM CHLORIDE
     Dosage: 100 MILLILITER
     Route: 041
  17. SODIUM CHLORIDE [Concomitant]
     Active Substance: SODIUM CHLORIDE
     Dosage: 500 MILLILITER
  18. SODIUM CHLORIDE [Concomitant]
     Active Substance: SODIUM CHLORIDE
     Dosage: 500 MILLILITER
     Route: 041

REACTIONS (1)
  - Myelosuppression [Recovering/Resolving]

NARRATIVE: CASE EVENT DATE: 20251030
